FAERS Safety Report 8837827 (Version 3)
Quarter: 2012Q4

REPORT INFORMATION
  Report Type: 
  Country: JP (occurrence: JP)
  Receive Date: 20121012
  Receipt Date: 20121212
  Transmission Date: 20130627
  Serious: Yes (Hospitalization)
  Sender: FDA-Public Use
  Company Number: JP-ABBOTT-12P-087-0994026-00

PATIENT
  Age: 45 Year
  Sex: Female
  Weight: 66.6 kg

DRUGS (3)
  1. SEVOFLURANE [Suspect]
     Indication: GENERAL ANAESTHESIA
     Route: 055
  2. REMIFENTANIL HYDROCHLORIDE [Concomitant]
     Indication: GENERAL ANAESTHESIA
     Route: 065
  3. FENTANYL [Concomitant]
     Indication: POSTOPERATIVE ANALGESIA
     Route: 065

REACTIONS (2)
  - Atelectasis [Unknown]
  - Chills [Unknown]
